FAERS Safety Report 6894596-8 (Version None)
Quarter: 2010Q3

REPORT INFORMATION
  Report Type: 
  Country: None (occurrence: None)
  Receive Date: 20100802
  Receipt Date: 20100720
  Transmission Date: 20110219
  Serious: Yes (Other)
  Sender: FDA-Public Use
  Company Number: PHFR2010GB01404

PATIENT
  Sex: Female

DRUGS (2)
  1. TEGRETOL [Suspect]
  2. TEGRETOL-XR [Suspect]

REACTIONS (2)
  - PETIT MAL EPILEPSY [None]
  - WRONG DRUG ADMINISTERED [None]
